FAERS Safety Report 9812528 (Version 1)
Quarter: 2014Q1

REPORT INFORMATION
  Report Type: Other
  Country: DK (occurrence: DK)
  Receive Date: 20140113
  Receipt Date: 20140113
  Transmission Date: 20141002
  Serious: Yes (Other)
  Sender: FDA-Public Use
  Company Number: DK-SUN PHARMACEUTICAL INDUSTRIES LTD-2014SUN00019

PATIENT
  Sex: Female

DRUGS (3)
  1. LEVETIRACETAM INJECTION 500MG/5ML [Suspect]
     Indication: EPILEPSY
     Dosage: 2500 UNK, OD
     Route: 065
  2. CLOBAZAM [Concomitant]
     Indication: EPILEPSY
  3. LAMOTRIGINE [Concomitant]
     Indication: EPILEPSY

REACTIONS (2)
  - Abortion spontaneous [Unknown]
  - Pregnancy [Recovered/Resolved]
